FAERS Safety Report 6751121-X (Version None)
Quarter: 2010Q2

REPORT INFORMATION
  Report Type: 
  Country: None (occurrence: None)
  Receive Date: 20100526
  Receipt Date: 20100315
  Transmission Date: 20101027
  Serious: No
  Sender: FDA-Public Use
  Company Number: 305850

PATIENT
  Age: 61 Year
  Sex: Female

DRUGS (3)
  1. VICTOZA [Suspect]
     Indication: TYPE 2 DIABETES MELLITUS
     Dosage: 0.6 MG, QD, SUBCUTANEOUS; 1.2 MG, QD, SUBCUTANEOUS
     Route: 057
     Dates: start: 20100304, end: 20100310
  2. VICTOZA [Suspect]
     Indication: TYPE 2 DIABETES MELLITUS
     Dosage: 0.6 MG, QD, SUBCUTANEOUS; 1.2 MG, QD, SUBCUTANEOUS
     Route: 057
     Dates: start: 20100311
  3. METFORMIN (METFORMIN) TABLET [Concomitant]

REACTIONS (3)
  - DIARRHOEA [None]
  - DIZZINESS [None]
  - NAUSEA [None]
